FAERS Safety Report 11303520 (Version 1)
Quarter: 2015Q3

REPORT INFORMATION
  Report Type: Spontaneous
  Country: US (occurrence: US)
  Receive Date: 20150723
  Receipt Date: 20150723
  Transmission Date: 20151125
  Serious: No
  Sender: FDA-Public Use
  Company Number: US-JNJFOC-20150309590

PATIENT
  Age: 65 Year
  Sex: Female
  Weight: 47.63 kg

DRUGS (3)
  1. ZYRTEC [Suspect]
     Active Substance: CETIRIZINE HYDROCHLORIDE
     Route: 048
  2. ZYRTEC [Suspect]
     Active Substance: CETIRIZINE HYDROCHLORIDE
     Indication: MULTIPLE ALLERGIES
     Dosage: 3 DAYS, 24 HOURS APART
     Route: 048
     Dates: start: 20150307, end: 20150310
  3. ROBITUSSIN (DEXTROMETHORPHAN) [Concomitant]
     Indication: NASOPHARYNGITIS
     Route: 065

REACTIONS (4)
  - Dry mouth [Recovering/Resolving]
  - Dry throat [Recovering/Resolving]
  - Malaise [Recovering/Resolving]
  - Dysphagia [Recovering/Resolving]

NARRATIVE: CASE EVENT DATE: 20150307
